FAERS Safety Report 5319783-1 (Version None)
Quarter: 2007Q1

REPORT INFORMATION
  Report Type: 
  Country: None (occurrence: None)
  Receive Date: 20070201
  Receipt Date: 20061010
  Transmission Date: 20070707
  Serious: Yes (Other)
  Sender: FDA-Public Use
  Company Number: 2006124926

PATIENT
  Age: 56 Year
  Sex: Female

DRUGS (3)
  1. AROMASIN [Suspect]
     Dosage: 25 MG (25 MG, 1 IN 1 D), ORAL
     Route: 048
     Dates: start: 20060901
  2. ANTIDEPRESSANTS (ANTIDEPRESSANTS) [Concomitant]
  3. DRUG, UNSPECIFIED (DRUG, UNSPECIFIED) [Concomitant]

REACTIONS (1)
  - RASH GENERALISED [None]
